FAERS Safety Report 25188705 (Version 1)
Quarter: 2025Q2

REPORT INFORMATION
  Report Type: Spontaneous
  Country: US (occurrence: US)
  Receive Date: 20250411
  Receipt Date: 20250411
  Transmission Date: 20250717
  Serious: Yes (Life-Threatening, Hospitalization, Other)
  Sender: EPIC PHARM
  Company Number: US-EPICPHARMA-US-2025EPCLIT00437

PATIENT
  Age: 18 Year
  Sex: Male

DRUGS (1)
  1. VENLAFAXINE HYDROCHLORIDE [Suspect]
     Active Substance: VENLAFAXINE HYDROCHLORIDE
     Indication: Product used for unknown indication
     Route: 048

REACTIONS (5)
  - Cardiac arrest [Recovered/Resolved]
  - Status epilepticus [Recovered/Resolved]
  - Arrhythmic storm [Recovered/Resolved]
  - Cardiac failure congestive [Recovered/Resolved]
  - Overdose [Unknown]
